FAERS Safety Report 23944493 (Version 1)
Quarter: 2024Q2

REPORT INFORMATION
  Report Type: Report from Study
  Country: US (occurrence: US)
  Receive Date: 20240606
  Receipt Date: 20240606
  Transmission Date: 20240716
  Serious: Yes (Hospitalization)
  Sender: FDA-Public Use
  Company Number: US-ABBVIE-5782128

PATIENT
  Sex: Male
  Weight: 92.532 kg

DRUGS (13)
  1. SKYRIZI [Suspect]
     Active Substance: RISANKIZUMAB-RZAA
     Indication: Crohn^s disease
     Route: 058
     Dates: start: 20230101
  2. BUDESONIDE [Concomitant]
     Active Substance: BUDESONIDE
     Indication: Prophylaxis against diarrhoea
     Dates: start: 20240528
  3. MELOXICAM [Concomitant]
     Active Substance: MELOXICAM
     Indication: Rheumatoid arthritis
     Dates: start: 2019
  4. LOSARTAN POTASSIUM [Concomitant]
     Active Substance: LOSARTAN POTASSIUM
     Indication: Hypertension
     Dates: start: 2004
  5. PYRIDOSTIGMINE [Concomitant]
     Active Substance: PYRIDOSTIGMINE
     Indication: Diplopia
     Dates: start: 2020
  6. NABUMETONE [Concomitant]
     Active Substance: NABUMETONE
     Indication: Antiinflammatory therapy
     Dates: start: 2020
  7. PREDNISONE [Concomitant]
     Active Substance: PREDNISONE
     Indication: Diplopia
     Dates: start: 2021
  8. CLINDAMYCIN PHOSPHATE [Concomitant]
     Active Substance: CLINDAMYCIN PHOSPHATE
     Indication: Scar
     Dates: start: 202404
  9. DIPHENOXYLATE [Concomitant]
     Active Substance: DIPHENOXYLATE
     Indication: Diarrhoea
     Dates: start: 2019
  10. OMEPRAZOLE [Concomitant]
     Active Substance: DONEPEZIL HYDROCHLORIDE\OMEPRAZOLE\OMEPRAZOLE MAGNESIUM
     Indication: Gastrooesophageal reflux disease
     Dosage: DR
     Dates: start: 2021
  11. PRAVASTATIN SODIUM [Concomitant]
     Active Substance: PRAVASTATIN SODIUM
     Indication: Blood cholesterol
     Dates: start: 2014
  12. VERAPAMIL [Concomitant]
     Active Substance: VERAPAMIL HYDROCHLORIDE
     Indication: Hypertension
     Dates: start: 2004
  13. DICYCLOMINE [Concomitant]
     Active Substance: DICYCLOMINE HYDROCHLORIDE
     Indication: Abdominal pain
     Dates: start: 2018

REACTIONS (7)
  - Dehydration [Recovering/Resolving]
  - Blood potassium decreased [Recovering/Resolving]
  - Diarrhoea [Not Recovered/Not Resolved]
  - Urinary tract infection [Recovered/Resolved]
  - Weight decreased [Recovering/Resolving]
  - Asthenia [Not Recovered/Not Resolved]
  - Blood electrolytes decreased [Recovering/Resolving]

NARRATIVE: CASE EVENT DATE: 20230101
